FAERS Safety Report 7519739-4 (Version None)
Quarter: 2011Q2

REPORT INFORMATION
  Report Type: 
  Country: None (occurrence: None)
  Receive Date: 20110602
  Receipt Date: 20110517
  Transmission Date: 20111010
  Serious: Yes (Life-Threatening, Hospitalization, Other)
  Sender: FDA-Public Use
  Company Number: US-BAYER-201024068NA

PATIENT
  Age: 23 Year
  Sex: Female
  Weight: 58.957 kg

DRUGS (1)
  1. YAZ [Suspect]
     Indication: CONTRACEPTION
     Dosage: UNK
     Route: 048
     Dates: start: 20071101, end: 20080601

REACTIONS (6)
  - AORTIC VALVE DISEASE [None]
  - FATIGUE [None]
  - DEEP VEIN THROMBOSIS [None]
  - PAIN [None]
  - DEFORMITY [None]
  - ASTHENIA [None]
